FAERS Safety Report 11181633 (Version 1)
Quarter: 2015Q2

REPORT INFORMATION
  Report Type: Spontaneous
  Country: US (occurrence: US)
  Receive Date: 20150611
  Receipt Date: 20150611
  Transmission Date: 20150821
  Serious: No
  Sender: FDA-Public Use
  Company Number: US-ASTELLAS-2015US014550

PATIENT
  Age: 69 Year
  Sex: Male

DRUGS (4)
  1. XTANDI [Suspect]
     Active Substance: ENZALUTAMIDE
     Indication: PROSTATE CANCER METASTATIC
     Route: 065
     Dates: start: 20150220
  2. COUMADIN [Interacting]
     Active Substance: WARFARIN SODIUM
     Dosage: 7 MG DURING WEEK AND ON WEEKEND 8 MG, ONCE DAILY
     Route: 065
  3. COUMADIN [Interacting]
     Active Substance: WARFARIN SODIUM
     Indication: PRODUCT USED FOR UNKNOWN INDICATION
     Dosage: UNK UNK, UNKNOWN FREQ.
     Route: 065
     Dates: end: 201503
  4. COUMADIN [Interacting]
     Active Substance: WARFARIN SODIUM
     Dosage: UNK UNK, UNKNOWN FREQ.
     Route: 065
     Dates: end: 201504

REACTIONS (1)
  - Drug interaction [Unknown]

NARRATIVE: CASE EVENT DATE: 201503
